FAERS Safety Report 4745829-5 (Version None)
Quarter: 2005Q3

REPORT INFORMATION
  Report Type: 
  Country: None (occurrence: None)
  Receive Date: 20050815
  Receipt Date: 20050815
  Transmission Date: 20060218
  Serious: Yes (Other)
  Sender: FDA-Public Use
  Company Number: None

PATIENT
  Sex: Female
  Weight: 105.6881 kg

DRUGS (5)
  1. ZOLOFT [Suspect]
     Indication: ANXIETY
     Dosage: 50MG  ONCE DAILY   ORAL
     Route: 048
     Dates: start: 20040401, end: 20050725
  2. ZOLOFT [Suspect]
     Indication: DEPRESSION
     Dosage: 50MG  ONCE DAILY   ORAL
     Route: 048
     Dates: start: 20040401, end: 20050725
  3. BIRTH CONTROL PILLS [Concomitant]
  4. NASONEX [Concomitant]
  5. ZYRTEC [Concomitant]

REACTIONS (13)
  - ANXIETY [None]
  - CRYING [None]
  - DIZZINESS [None]
  - FATIGUE [None]
  - FEELING HOT AND COLD [None]
  - GAIT DISTURBANCE [None]
  - HEADACHE [None]
  - HOT FLUSH [None]
  - INSOMNIA [None]
  - MEMORY IMPAIRMENT [None]
  - NAUSEA [None]
  - RESTLESSNESS [None]
  - SUICIDAL IDEATION [None]
